FAERS Safety Report 10160231 (Version 4)
Quarter: 2015Q1

REPORT INFORMATION
  Report Type: Spontaneous
  Country: BR (occurrence: BR)
  Receive Date: 20140508
  Receipt Date: 20150225
  Transmission Date: 20150720
  Serious: Yes (Other)
  Sender: FDA-Public Use
  Company Number: PHHY2014BR055945

PATIENT
  Age: 34 Year
  Sex: Male

DRUGS (1)
  1. TEGRETOL-XR [Suspect]
     Active Substance: CARBAMAZEPINE
     Indication: PRODUCT USED FOR UNKNOWN INDICATION
     Dosage: UNK
     Route: 065

REACTIONS (1)
  - Petit mal epilepsy [Unknown]
